FAERS Safety Report 19200700 (Version 2)
Quarter: 2021Q2

REPORT INFORMATION
  Report Type: Report from Study
  Country: IT (occurrence: IT)
  Receive Date: 20210430
  Receipt Date: 20210602
  Transmission Date: 20210717
  Serious: Yes (Other)
  Sender: FDA-Public Use
  Company Number: IT-ACCORD-224012

PATIENT
  Age: 46 Year
  Sex: Male
  Weight: 0 kg

DRUGS (6)
  1. QUETIAPINE. [Suspect]
     Active Substance: QUETIAPINE
     Indication: GENERALISED TONIC-CLONIC SEIZURE
     Route: 048
     Dates: start: 20181222
  2. METHADONE [Concomitant]
     Active Substance: METHADONE HYDROCHLORIDE
     Dosage: AFOM 1 MG / ML ORAL SOLUTION
  3. CLEXANE T [Concomitant]
     Active Substance: ENOXAPARIN SODIUM
  4. NEURABEN [Concomitant]
     Active Substance: CYANOCOBALAMIN\PYRIDOXINE\THIAMINE
  5. DEPAKIN CHRONO [Suspect]
     Active Substance: VALPROIC ACID
     Indication: GENERALISED TONIC-CLONIC SEIZURE
     Dosage: 300 MG PROLONGED?RELEASE TABLETS
     Route: 048
     Dates: start: 20181222
  6. ALCOVER [Concomitant]
     Active Substance: SODIUM OXYBATE
     Dosage: 17.5 PERCENT ORAL SOLUTION 140 ML VIAL

REACTIONS (5)
  - Malaise [Unknown]
  - Head injury [Unknown]
  - Epilepsy [Unknown]
  - Vomiting [Unknown]
  - Alcohol abuse [Unknown]

NARRATIVE: CASE EVENT DATE: 20210118
